FAERS Safety Report 11216516 (Version 1)
Quarter: 2015Q2

REPORT INFORMATION
  Report Type: Spontaneous
  Country: US (occurrence: None)
  Receive Date: 20150623
  Receipt Date: 20150623
  Transmission Date: 20150821
  Serious: No
  Sender: FDA-Public Use
  Company Number: None

PATIENT
  Age: 48 Year
  Sex: Female
  Weight: 83.92 kg

DRUGS (3)
  1. MYRBETRIQ [Suspect]
     Active Substance: MIRABEGRON
     Indication: HYPERTONIC BLADDER
     Dosage: 1/DAY
     Route: 048
     Dates: start: 20150608, end: 20150617
  2. TYLENOL [Concomitant]
     Active Substance: ACETAMINOPHEN
  3. IBUPROFIN [Concomitant]

REACTIONS (6)
  - Nausea [None]
  - Urticaria [None]
  - Headache [None]
  - Diarrhoea [None]
  - Rash [None]
  - Peripheral swelling [None]

NARRATIVE: CASE EVENT DATE: 20150616
